FAERS Safety Report 10082908 (Version 3)
Quarter: 2014Q2

REPORT INFORMATION
  Report Type: Spontaneous
  Country: TH (occurrence: TH)
  Receive Date: 20140417
  Receipt Date: 20140606
  Transmission Date: 20141212
  Serious: No
  Sender: FDA-Public Use
  Company Number: TH-ROCHE-1375362

PATIENT
  Age: 83 Year
  Sex: Female

DRUGS (1)
  1. MIRCERA [Suspect]
     Indication: NEPHROGENIC ANAEMIA
     Dosage: LAST DATE OF DOSE PRIOR TOADVERSE EVENT WAS GIVEN AS 31/OCT/2013
     Route: 058
     Dates: start: 20131031, end: 20131031

REACTIONS (1)
  - Drug eruption [Recovered/Resolved]
